FAERS Safety Report 5955351-6 (Version None)
Quarter: 2008Q4

REPORT INFORMATION
  Report Type: 
  Country: None (occurrence: None)
  Receive Date: 20081113
  Receipt Date: 20081113
  Transmission Date: 20090506
  Serious: Yes (Life-Threatening, Hospitalization)
  Sender: FDA-Public Use
  Company Number: None

PATIENT
  Age: 89 Year
  Sex: Male
  Weight: 89 kg

DRUGS (1)
  1. ROSIGLITAZONE [Suspect]
     Indication: DIABETES MELLITUS
     Dosage: 8 MG EVERY DAY PO
     Route: 048
     Dates: start: 20070607, end: 20080929

REACTIONS (1)
  - HYPOGLYCAEMIA [None]
